FAERS Safety Report 10665486 (Version 1)
Quarter: 2014Q4

REPORT INFORMATION
  Report Type: Spontaneous
  Country: JP (occurrence: JP)
  Receive Date: 20141219
  Receipt Date: 20141219
  Transmission Date: 20150529
  Serious: Yes (Other)
  Sender: FDA-Public Use
  Company Number: JP-SUCAMPO AG-SPI201400906

PATIENT
  Age: 2 Decade
  Sex: Male

DRUGS (1)
  1. AMITIZA [Suspect]
     Active Substance: LUBIPROSTONE
     Dosage: 24 MCG, UNK
     Route: 048

REACTIONS (1)
  - Diabetes insipidus [Unknown]
